FAERS Safety Report 22092072 (Version 1)
Quarter: 2023Q1

REPORT INFORMATION
  Report Type: Spontaneous
  Country: BE (occurrence: BE)
  Receive Date: 20230314
  Receipt Date: 20230314
  Transmission Date: 20230417
  Serious: Yes (Other)
  Sender: FDA-Public Use
  Company Number: BE-AMGEN-BELSP2023039520

PATIENT
  Sex: Female

DRUGS (1)
  1. PROLIA [Suspect]
     Active Substance: DENOSUMAB
     Indication: Osteopenia
     Dosage: UNK
     Route: 065
     Dates: start: 201609, end: 20211214

REACTIONS (3)
  - Thoracic vertebral fracture [Unknown]
  - Dental implantation [Unknown]
  - Off label use [Unknown]

NARRATIVE: CASE EVENT DATE: 20160901
